FAERS Safety Report 21118351 (Version 1)
Quarter: 2022Q3

REPORT INFORMATION
  Report Type: Spontaneous
  Country: US (occurrence: US)
  Receive Date: 20220722
  Receipt Date: 20220722
  Transmission Date: 20221027
  Serious: No
  Sender: FDA-Public Use
  Company Number: US-PERRIGO-22US007886

PATIENT
  Sex: Female
  Weight: 90.703 kg

DRUGS (6)
  1. MINOXIDIL [Suspect]
     Active Substance: MINOXIDIL
     Indication: Alopecia
     Dosage: 1 ML, BID
     Route: 061
     Dates: start: 2017
  2. IMUNOVIR [Concomitant]
     Indication: Routine health maintenance
     Dosage: UNK
     Route: 065
     Dates: start: 1986
  3. ATENOLOL [Concomitant]
     Active Substance: ATENOLOL
     Indication: Relaxation therapy
     Dosage: TID
     Route: 065
     Dates: start: 1989
  4. ATENOLOL [Concomitant]
     Active Substance: ATENOLOL
     Indication: Palpitations
  5. LIBRIUM [Concomitant]
     Active Substance: CHLORDIAZEPOXIDE HYDROCHLORIDE
     Indication: Anxiety
     Dosage: UNK
     Route: 065
  6. LEVOTHYROXINE [Concomitant]
     Active Substance: LEVOTHYROXINE
     Indication: Hypothyroidism
     Dosage: UNK
     Route: 065
     Dates: start: 1965

REACTIONS (3)
  - Hair texture abnormal [Not Recovered/Not Resolved]
  - Hair colour changes [Not Recovered/Not Resolved]
  - Drug ineffective for unapproved indication [Unknown]

NARRATIVE: CASE EVENT DATE: 20170101
